FAERS Safety Report 11575085 (Version 2)
Quarter: 2015Q4

REPORT INFORMATION
  Report Type: Spontaneous
  Country: US (occurrence: US)
  Receive Date: 20150916
  Receipt Date: 20151027
  Transmission Date: 20160304
  Serious: No
  Sender: FDA-Public Use
  Company Number: US-ELI_LILLY_AND_COMPANY-US200911004753

PATIENT
  Sex: Female

DRUGS (2)
  1. FORTEO [Suspect]
     Active Substance: TERIPARATIDE
     Dosage: 20 UG, DAILY (1/D)
     Dates: start: 2010
  2. FORTEO [Suspect]
     Active Substance: TERIPARATIDE
     Indication: OSTEOPOROSIS POSTMENOPAUSAL
     Dosage: 20 UG, DAILY (1/D)
     Dates: start: 200911, end: 2010

REACTIONS (8)
  - Frequent bowel movements [Unknown]
  - Rectal haemorrhage [Unknown]
  - Injection site haemorrhage [Not Recovered/Not Resolved]
  - Abdominal pain upper [Unknown]
  - Injection site bruising [Unknown]
  - Faeces discoloured [Unknown]
  - Abdominal distension [Unknown]
  - Mucous stools [Unknown]
